FAERS Safety Report 21860240 (Version 1)
Quarter: 2023Q1

REPORT INFORMATION
  Report Type: Spontaneous
  Country: US (occurrence: None)
  Receive Date: 20230113
  Receipt Date: 20230113
  Transmission Date: 20230418
  Serious: Yes (Hospitalization)
  Sender: FDA-Public Use
  Company Number: None

PATIENT
  Age: 70 Year
  Sex: Female
  Weight: 77.3 kg

DRUGS (2)
  1. CARBOPLATIN [Suspect]
     Active Substance: CARBOPLATIN
     Dates: end: 20221229
  2. TAXOL [Suspect]
     Active Substance: PACLITAXEL
     Dates: end: 20221103

REACTIONS (7)
  - Abdominal pain [None]
  - Hypoxia [None]
  - Pulmonary embolism [None]
  - Constipation [None]
  - Cardiomegaly [None]
  - Aortic disorder [None]
  - Tracheal deviation [None]

NARRATIVE: CASE EVENT DATE: 20230106
